FAERS Safety Report 16674433 (Version 1)
Quarter: 2019Q3

REPORT INFORMATION
  Report Type: Spontaneous
  Country: CO (occurrence: CO)
  Receive Date: 20190806
  Receipt Date: 20190806
  Transmission Date: 20191004
  Serious: Yes (Life-Threatening)
  Sender: FDA-Public Use
  Company Number: CO-BIOMARINAP-CO-2019-125047

PATIENT
  Age: 34 Year
  Sex: Male
  Weight: 43 kg

DRUGS (2)
  1. VIMIZIM [Suspect]
     Active Substance: ELOSULFASE ALFA
     Dosage: 90 MILLIGRAM, QW
     Route: 042
     Dates: start: 20180801
  2. VIMIZIM [Suspect]
     Active Substance: ELOSULFASE ALFA
     Indication: MUCOPOLYSACCHARIDOSIS IV
     Dosage: 84 MILLIGRAM
     Route: 042
     Dates: start: 201802

REACTIONS (3)
  - Syncope [Unknown]
  - Hypotension [Unknown]
  - Discomfort [Unknown]

NARRATIVE: CASE EVENT DATE: 20190801
